FAERS Safety Report 11328867 (Version 2)
Quarter: 2015Q3

REPORT INFORMATION
  Report Type: Spontaneous
  Country: DE (occurrence: DE)
  Receive Date: 20150801
  Receipt Date: 20150804
  Transmission Date: 20151125
  Serious: Yes (Other)
  Sender: FDA-Public Use
  Company Number: DE-SUN PHARMACEUTICAL INDUSTRIES LTD-2015R1-97400

PATIENT
  Age: 79 Year
  Sex: Female

DRUGS (1)
  1. OXCARBAZEPINE. [Suspect]
     Active Substance: OXCARBAZEPINE
     Indication: STATUS EPILEPTICUS
     Dosage: INITIAL 1200MG, BOLUS, MAXIMUM DAILY DOSE WAS 2400MG
     Route: 040

REACTIONS (2)
  - Disorientation [Unknown]
  - Hyponatraemia [Unknown]
